FAERS Safety Report 25605287 (Version 1)
Quarter: 2025Q3

REPORT INFORMATION
  Report Type: Spontaneous
  Country: US (occurrence: None)
  Receive Date: 20250724
  Receipt Date: 20250724
  Transmission Date: 20251021
  Serious: No
  Sender: FDA-CTU
  Company Number: None

PATIENT
  Age: 63 Year
  Sex: Female
  Weight: 101.6 kg

DRUGS (1)
  1. ADBRY [Suspect]
     Active Substance: TRALOKINUMAB-LDRM
     Indication: Dermatitis atopic
     Dosage: FREQUENCY : EVERY OTHER WEEK;?
     Route: 058
     Dates: start: 202312

REACTIONS (14)
  - Arthritis [None]
  - Myocardial infarction [None]
  - Thrombosis [None]
  - Psychotic disorder [None]
  - Bipolar disorder [None]
  - Neck pain [None]
  - Anxiety [None]
  - Depression [None]
  - Gastrooesophageal reflux disease [None]
  - Hypercholesterolaemia [None]
  - Diabetes mellitus [None]
  - Headache [None]
  - Hypertension [None]
  - Thyroid disorder [None]
